FAERS Safety Report 6160899-8 (Version None)
Quarter: 2009Q2

REPORT INFORMATION
  Report Type: 
  Country: None (occurrence: None)
  Receive Date: 20090420
  Receipt Date: 20090320
  Transmission Date: 20091009
  Serious: No
  Sender: FDA-Public Use
  Company Number: US-BAYER-200910923BCC

PATIENT
  Age: 88 Year
  Sex: Male
  Weight: 60 kg

DRUGS (9)
  1. ALEVE [Suspect]
     Indication: HEADACHE
     Dosage: TOTAL DAILY DOSE: 440 MG  UNIT DOSE: 220 MG
     Route: 048
     Dates: start: 20090319
  2. LISINOPRIL [Concomitant]
  3. OMEPRAZOLE [Concomitant]
  4. LOVASTATIN [Concomitant]
  5. DOXAZOSIN MESYLATE [Concomitant]
  6. METFORMIN HCL [Concomitant]
  7. FERROUS GLUCONATE [Concomitant]
  8. CENTRUM SILVER [Concomitant]
  9. NYQUIL [Concomitant]

REACTIONS (1)
  - HEADACHE [None]
